FAERS Safety Report 19123001 (Version 2)
Quarter: 2021Q2

REPORT INFORMATION
  Report Type: Spontaneous
  Country: US (occurrence: US)
  Receive Date: 20210412
  Receipt Date: 20210413
  Transmission Date: 20210717
  Serious: No
  Sender: FDA-Public Use
  Company Number: US-ORGANON-O2104USA000555

PATIENT
  Age: 24 Year
  Sex: Female
  Weight: 95.69 kg

DRUGS (3)
  1. NEXPLANON [Suspect]
     Active Substance: ETONOGESTREL
     Dosage: 1 DOSAGE FORM
     Route: 059
  2. NEXPLANON [Suspect]
     Active Substance: ETONOGESTREL
     Dosage: 1 DOSAGE FORM
     Route: 059
  3. NEXPLANON [Suspect]
     Active Substance: ETONOGESTREL
     Indication: CONTRACEPTION
     Dosage: 68 MG, LEFT ARM
     Route: 059
     Dates: start: 20200624, end: 20210406

REACTIONS (2)
  - Device kink [Recovered/Resolved]
  - Medical device site discomfort [Recovering/Resolving]

NARRATIVE: CASE EVENT DATE: 20200624
